FAERS Safety Report 8486833-3 (Version None)
Quarter: 2012Q3

REPORT INFORMATION
  Report Type: 
  Country: None (occurrence: None)
  Receive Date: 20120704
  Receipt Date: 20120623
  Transmission Date: 20120928
  Serious: Yes (Other)
  Sender: FDA-Public Use
  Company Number: ES-PAR PHARMACEUTICAL, INC-2012SCPR004469

PATIENT

DRUGS (3)
  1. OXYCODONE HCL [Suspect]
     Indication: CANCER PAIN
     Dosage: 55 MG, SLOW RELEASE EVERY 12 HOURS
     Route: 048
  2. FENTANYL CITRATE [Suspect]
     Indication: BREAKTHROUGH PAIN
     Dosage: 200 MCG, PRN (APPROXIMATELY 18 UNITS PER DAY)
     Route: 048
  3. DULOXETIME HYDROCHLORIDE [Concomitant]
     Indication: PRODUCT USED FOR UNKNOWN INDICATION
     Dosage: 60 MG, / DAY
     Route: 048

REACTIONS (4)
  - DRUG ABUSE [None]
  - DRUG DEPENDENCE [None]
  - DRUG WITHDRAWAL SYNDROME [None]
  - OFF LABEL USE [None]
